FAERS Safety Report 6093854-7 (Version None)
Quarter: 2009Q1

REPORT INFORMATION
  Report Type: 
  Country: None (occurrence: None)
  Receive Date: 20090226
  Receipt Date: 20090217
  Transmission Date: 20090719
  Serious: Yes (Other)
  Sender: FDA-Public Use
  Company Number: JP-PFIZER INC-2009172195

PATIENT

DRUGS (3)
  1. GABAPEN [Suspect]
     Indication: PAIN
     Dosage: UNK
     Route: 048
  2. ALL OTHER THERAPEUTIC PRODUCTS [Concomitant]
  3. FENTANYL CITRATE [Concomitant]

REACTIONS (4)
  - DELAYED RECOVERY FROM ANAESTHESIA [None]
  - DELIRIUM [None]
  - SOMNOLENCE [None]
  - WITHDRAWAL SYNDROME [None]
